FAERS Safety Report 16118985 (Version 2)
Quarter: 2019Q2

REPORT INFORMATION
  Report Type: Report from Study
  Country: JP (occurrence: JP)
  Receive Date: 20190326
  Receipt Date: 20190402
  Transmission Date: 20190711
  Serious: Yes (Other)
  Sender: FDA-Public Use
  Company Number: JP-BAYER-2019-059070

PATIENT
  Sex: Female

DRUGS (2)
  1. BLINDED ACETYLSALICYLIC ACID (CARDIO) [Suspect]
     Active Substance: ASPIRIN
  2. MESALAZINE [Suspect]
     Active Substance: MESALAMINE

REACTIONS (1)
  - Uterine cancer [Recovering/Resolving]
